FAERS Safety Report 18464444 (Version 5)
Quarter: 2021Q1

REPORT INFORMATION
  Report Type: Spontaneous
  Country: US (occurrence: US)
  Receive Date: 20201104
  Receipt Date: 20210111
  Transmission Date: 20210419
  Serious: No
  Sender: FDA-Public Use
  Company Number: US-PFIZER INC-2017174172

PATIENT
  Age: 76 Year
  Sex: Female
  Weight: 91 kg

DRUGS (9)
  1. NICOTROL [Suspect]
     Active Substance: NICOTINE
     Dosage: UNK
  2. NICOTROL [Suspect]
     Active Substance: NICOTINE
     Dosage: 10 MG, ^USES QUITE OFTEN^
  3. NICOTROL [Suspect]
     Active Substance: NICOTINE
     Dosage: UNK (10MG, 4 DELIVERED IN HER SYSTEM)
  4. NICOTROL [Suspect]
     Active Substance: NICOTINE
     Indication: SMOKING CESSATION THERAPY
     Dosage: 10 MG, AS NEEDED
     Dates: start: 2012
  5. NICOTROL [Suspect]
     Active Substance: NICOTINE
     Dosage: UNK
  6. NICOTROL [Suspect]
     Active Substance: NICOTINE
     Dosage: 10 MG, UNK
  7. NICOTROL [Suspect]
     Active Substance: NICOTINE
     Dosage: 10 MG, UNK
  8. NICOTROL [Suspect]
     Active Substance: NICOTINE
     Dosage: UNK
  9. NICOTROL [Suspect]
     Active Substance: NICOTINE
     Dosage: UNK

REACTIONS (5)
  - Product taste abnormal [Unknown]
  - Intentional product use issue [Unknown]
  - Fatigue [Unknown]
  - Poor quality product administered [Unknown]
  - Off label use [Unknown]

NARRATIVE: CASE EVENT DATE: 20170417
